FAERS Safety Report 18783949 (Version 1)
Quarter: 2021Q1

REPORT INFORMATION
  Report Type: Spontaneous
  Country: GB (occurrence: GB)
  Receive Date: 20210125
  Receipt Date: 20210125
  Transmission Date: 20210419
  Serious: Yes (Other)
  Sender: FDA-Public Use
  Company Number: GB-MYLANLABS-2021M1003658

PATIENT
  Age: 58 Year
  Sex: Female
  Weight: 65 kg

DRUGS (14)
  1. CLINDAMYCIN. [Concomitant]
     Active Substance: CLINDAMYCIN
     Dosage: 1 DOSAGE FORM, QID
     Dates: start: 20201230
  2. LAXIDO [Concomitant]
     Active Substance: POLYETHYLENE GLYCOL 3350\POTASSIUM CHLORIDE\SODIUM BICARBONATE\SODIUM CHLORIDE
     Dosage: AS DIRECTED.
     Dates: start: 20190227
  3. CLINDAMYCIN. [Suspect]
     Active Substance: CLINDAMYCIN
     Indication: PRODUCT USED FOR UNKNOWN INDICATION
     Dosage: 150 MILLIGRAM
     Dates: start: 20210104
  4. INSULIN [Concomitant]
     Active Substance: INSULIN NOS
     Dosage: AS DIRECTED.
     Dates: start: 20180319
  5. DULOXETINE. [Concomitant]
     Active Substance: DULOXETINE
     Dosage: 1 DOSAGE FORM, QOD
     Dates: start: 20191203
  6. NOVORAPID [Concomitant]
     Active Substance: INSULIN ASPART
     Dosage: AS DIRECTED.
     Dates: start: 20200825
  7. LANTUS [Concomitant]
     Active Substance: INSULIN GLARGINE
     Dosage: AS DIRECTED.
     Dates: start: 20200623
  8. ATORVASTATIN [Concomitant]
     Active Substance: ATORVASTATIN
     Dosage: 1 DOSAGE FORM, QD
     Dates: start: 20200512
  9. DOXYCYCLINE. [Concomitant]
     Active Substance: DOXYCYCLINE
     Indication: INFECTION
     Dosage: TAKE TWO NOW, THEN ONE DAILY
     Dates: start: 20210104
  10. HYOSCINE BUTYLBROMIDE [Concomitant]
     Active Substance: BUTYLSCOPOLAMINE BROMIDE
     Dosage: IF SPASM
     Dates: start: 20190730
  11. FOLIC ACID. [Concomitant]
     Active Substance: FOLIC ACID
     Dosage: 1 DOSAGE FORM, QD
     Dates: start: 20200623
  12. PEPPERMINT OIL [Concomitant]
     Active Substance: PEPPERMINT OIL
     Dosage: 1 DOSAGE FORM, TID
     Dates: start: 20191129
  13. SERTRALINE [Concomitant]
     Active Substance: SERTRALINE HYDROCHLORIDE
     Dosage: 1 DOSAGE FORM, QD
     Dates: start: 20200825
  14. OMEPRAZOLE. [Concomitant]
     Active Substance: OMEPRAZOLE
     Dosage: AS DIRECTED.
     Dates: start: 20200305

REACTIONS (3)
  - Paraesthesia [Unknown]
  - Rash macular [Recovering/Resolving]
  - Malaise [Unknown]

NARRATIVE: CASE EVENT DATE: 20210104
